FAERS Safety Report 11287435 (Version 1)
Quarter: 2015Q2

REPORT INFORMATION
  Report Type: Spontaneous
  Country: US (occurrence: None)
  Receive Date: 20150623
  Receipt Date: 20150623
  Transmission Date: 20150821
  Serious: Yes (Other)
  Sender: FDA-Public Use
  Company Number: RB-73090-2015

PATIENT
  Age: 14 Year
  Sex: Female

DRUGS (1)
  1. DEXTROMETHORPHAN/GUAIFENESIN 1200 MG (RB RECKITT BENCKISER)) [Suspect]
     Active Substance: DEXTROMETHORPHAN\GUAIFENESIN
     Indication: INTENTIONAL SELF-INJURY
     Dosage: (3600 MG 1X, TOOK 3 TABLETS AT ONCE (INTENTIONALLY) UNKNOWN)
     Dates: start: 20150203

REACTIONS (3)
  - Feeling abnormal [None]
  - Intentional overdose [None]
  - Drug abuse [None]

NARRATIVE: CASE EVENT DATE: 20150203
